FAERS Safety Report 14590404 (Version 1)
Quarter: 2018Q1

REPORT INFORMATION
  Report Type: Spontaneous
  Country: US (occurrence: US)
  Receive Date: 20180301
  Receipt Date: 20180301
  Transmission Date: 20180509
  Serious: No
  Sender: FDA-Public Use
  Company Number: None

PATIENT
  Age: 88 Year
  Sex: Female

DRUGS (1)
  1. PROLIA [Suspect]
     Active Substance: DENOSUMAB
     Dosage: 60MG SQ Q6MONTHS?01-JUN-2018
     Route: 058

REACTIONS (1)
  - Weight decreased [None]

NARRATIVE: CASE EVENT DATE: 20170601
